FAERS Safety Report 7914671-6 (Version None)
Quarter: 2011Q4

REPORT INFORMATION
  Report Type: 
  Country: None (occurrence: None)
  Receive Date: 20111115
  Receipt Date: 20111108
  Transmission Date: 20120403
  Serious: Yes (Other)
  Sender: FDA-Public Use
  Company Number: PHEH2011US009048

PATIENT
  Sex: Female
  Weight: 73 kg

DRUGS (3)
  1. BIAFINE [Concomitant]
     Dosage: UNK UKN, PRN
     Dates: start: 20110928
  2. GILENYA [Suspect]
     Dosage: UNK UKN, UNK
     Route: 048
  3. PREDNISONE TAB [Concomitant]
     Dosage: UNK UKN, UNK
     Dates: start: 20110928

REACTIONS (1)
  - SKIN DISORDER [None]
